FAERS Safety Report 4603289-9 (Version None)
Quarter: 2005Q2

REPORT INFORMATION
  Report Type: 
  Country: None (occurrence: None)
  Receive Date: 20050223
  Receipt Date: 20040315
  Transmission Date: 20051028
  Serious: Yes (Other)
  Sender: FDA-Public Use
  Company Number: PHEH2004US01252

PATIENT
  Age: 62 Year
  Sex: Female
  Weight: 90.7 kg

DRUGS (2)
  1. DIOVAN [Suspect]
     Indication: HYPERTENSION
     Dosage: 80MG,QD,ORAL  160MG,QD,ORAL   240 MG,QD ORAL
     Route: 048
  2. HYDROCHLOROTHIAZIDE [Concomitant]

REACTIONS (4)
  - BLOOD PRESSURE INCREASED [None]
  - ERYTHEMA [None]
  - FEELING ABNORMAL [None]
  - HYPERSENSITIVITY [None]
